FAERS Safety Report 7741171-9 (Version None)
Quarter: 2011Q3

REPORT INFORMATION
  Report Type: 
  Country: None (occurrence: None)
  Receive Date: 20110909
  Receipt Date: 20110830
  Transmission Date: 20111222
  Serious: Yes (Hospitalization, Other)
  Sender: FDA-Public Use
  Company Number: TR-ELI_LILLY_AND_COMPANY-TR201109000227

PATIENT
  Age: 29 Year
  Sex: Male

DRUGS (2)
  1. OLANZAPINE [Suspect]
     Dosage: 560 MG, SINGLE
  2. OLANZAPINE [Suspect]
     Indication: SCHIZOPHRENIA
     Dosage: 10 MG, BID
     Dates: start: 20070101

REACTIONS (5)
  - SUICIDE ATTEMPT [None]
  - INTENTIONAL OVERDOSE [None]
  - DIABETES INSIPIDUS [None]
  - LOSS OF CONSCIOUSNESS [None]
  - SINUS TACHYCARDIA [None]
